FAERS Safety Report 4464132-4 (Version None)
Quarter: 2004Q4

REPORT INFORMATION
  Report Type: 
  Country: None (occurrence: None)
  Receive Date: 20041001
  Receipt Date: 20040927
  Transmission Date: 20050328
  Serious: Yes (Hospitalization)
  Sender: FDA-Public Use
  Company Number: CA-JNJFOC-20040809247

PATIENT
  Age: 81 Year
  Sex: Male

DRUGS (7)
  1. REMICADE [Suspect]
     Route: 042
  2. REMICADE [Suspect]
     Indication: CROHN'S DISEASE
     Route: 042
  3. LOPERAMIDE HCL [Concomitant]
  4. PREDNISONE [Concomitant]
     Indication: PREMEDICATION
  5. PREDNISONE [Concomitant]
     Dosage: 30 MG, BEFORE EACH INFUSION FOR PREMEDICATION
  6. FISH OIL [Concomitant]
     Dates: start: 20040701
  7. BENADRYL [Concomitant]
     Indication: PREMEDICATION

REACTIONS (3)
  - BODY TEMPERATURE INCREASED [None]
  - CHILLS [None]
  - FEELING HOT [None]
